FAERS Safety Report 4662940-8 (Version None)
Quarter: 2005Q2

REPORT INFORMATION
  Report Type: 
  Country: None (occurrence: None)
  Receive Date: 20050513
  Receipt Date: 20041217
  Transmission Date: 20051028
  Serious: Yes (Death)
  Sender: FDA-Public Use
  Company Number: 2004S1003728

PATIENT
  Age: 39 Year
  Sex: Male
  Weight: 104.3273 kg

DRUGS (1)
  1. CLONIDINE HYDROCHLORIDE TABLETS, USP (0.3 MG) [Suspect]
     Indication: HYPERTENSION
     Dosage: 0.3 MG; BID; PO
     Route: 048

REACTIONS (5)
  - ATHEROSCLEROSIS [None]
  - DRUG DOSE OMISSION [None]
  - HYPERTENSIVE HEART DISEASE [None]
  - INCORRECT DOSE ADMINISTERED [None]
  - MYOCARDIAL INFARCTION [None]
